FAERS Safety Report 9893716 (Version 2)
Quarter: 2014Q2

REPORT INFORMATION
  Report Type: Report from Study
  Country: US (occurrence: US)
  Receive Date: 20140213
  Receipt Date: 20140408
  Transmission Date: 20141212
  Serious: Yes (Death)
  Sender: FDA-Public Use
  Company Number: PHEH2014US002917

PATIENT
  Sex: Female

DRUGS (12)
  1. TOBI [Suspect]
     Indication: BRONCHITIS
     Dosage: 1 DF, Q12H
     Route: 055
     Dates: start: 20100611
  2. TOBI [Suspect]
     Indication: CONGENITAL BRONCHIECTASIS
     Dosage: 1 DF, (300 MG) BID
     Route: 055
     Dates: start: 2011, end: 2013
  3. TOBI [Suspect]
     Indication: BRONCHIECTASIS
  4. TOBI [Suspect]
     Indication: PSEUDOMONAS INFECTION
  5. LIPITOR [Concomitant]
     Dosage: UNK UKN, UNK
  6. MULTI-VIT [Concomitant]
     Dosage: UNK UKN, UNK
  7. SINGULAR [Concomitant]
     Dosage: UNK UKN, UNK
  8. THEOPHYLLINE [Concomitant]
     Dosage: UNK UKN, UNK
  9. VIT D [Concomitant]
     Dosage: UNK UKN, UNK
  10. LEVAQUIN [Concomitant]
     Indication: PNEUMONIA
     Dosage: 500 UKN, QD
     Route: 048
  11. SUPROX [Concomitant]
     Indication: PNEUMONIA
     Dosage: 400 UG, QD
     Route: 048
  12. CEFIXIME [Concomitant]
     Indication: PNEUMONIA
     Dosage: UNK UKN, QD
     Route: 042
     Dates: end: 2013

REACTIONS (1)
  - Death [Fatal]
